FAERS Safety Report 16445359 (Version 1)
Quarter: 2019Q2

REPORT INFORMATION
  Report Type: Spontaneous
  Country: US (occurrence: US)
  Receive Date: 20190508
  Receipt Date: 20190508
  Transmission Date: 20190711
  Serious: Yes (Life-Threatening, Other)
  Sender: FDA-Public Use
  Company Number: None

PATIENT
  Sex: Female

DRUGS (1)
  1. MEDROXYPROGESTERONE ACETATE 150MG [Suspect]
     Active Substance: MEDROXYPROGESTERONE ACETATE
     Indication: INJECTABLE CONTRACEPTION
     Dosage: 150MG Q12  WKS IM
     Route: 030
     Dates: start: 20181130, end: 20190425

REACTIONS (5)
  - Needle issue [None]
  - Exposure during pregnancy [None]
  - Pregnancy with injectable contraceptive [None]
  - Incorrect dose administered [None]
  - Product preparation issue [None]
